FAERS Safety Report 9354169 (Version 1)
Quarter: 2013Q2

REPORT INFORMATION
  Report Type: Other
  Country: ES (occurrence: ES)
  Receive Date: 20130618
  Receipt Date: 20130618
  Transmission Date: 20140414
  Serious: Yes (Death, Other)
  Sender: FDA-Public Use
  Company Number: ES-CELGENEUS-144-C4047-13062075

PATIENT
  Sex: 0

DRUGS (5)
  1. CC-4047 [Suspect]
     Indication: PLASMA CELL MYELOMA
     Route: 048
     Dates: start: 2009, end: 2012
  2. CC-4047 [Suspect]
     Indication: PLASMA CELL LEUKAEMIA
     Route: 048
     Dates: start: 2009, end: 2012
  3. CC-4047 [Suspect]
     Route: 048
     Dates: start: 2009, end: 2012
  4. DEXAMETHASONE [Suspect]
     Indication: PLASMA CELL MYELOMA
     Route: 065
  5. HEPARIN [Concomitant]
     Indication: THROMBOSIS PROPHYLAXIS
     Route: 065

REACTIONS (10)
  - Plasma cell myeloma [Fatal]
  - Pneumonia [Fatal]
  - Cytomegalovirus infection [Fatal]
  - Anaemia [Unknown]
  - Leukopenia [Unknown]
  - Thrombocytopenia [Unknown]
  - Pneumonia [Unknown]
  - No therapeutic response [Unknown]
  - Asthenia [Unknown]
  - Diarrhoea [Unknown]
